FAERS Safety Report 25151264 (Version 1)
Quarter: 2025Q2

REPORT INFORMATION
  Report Type: Spontaneous
  Country: CN (occurrence: CN)
  Receive Date: 20250402
  Receipt Date: 20250402
  Transmission Date: 20250717
  Serious: Yes (Other)
  Sender: PFIZER
  Company Number: CN-PFIZER INC-PV202500039073

PATIENT
  Age: 68 Year
  Sex: Female
  Weight: 36 kg

DRUGS (1)
  1. LINEZOLID [Suspect]
     Active Substance: LINEZOLID
     Indication: Soft tissue infection
     Dosage: 0.6 G, 2X/DAY
     Route: 041
     Dates: start: 20250330, end: 20250330

REACTIONS (5)
  - Loss of consciousness [Recovering/Resolving]
  - Cerebral infarction [Recovering/Resolving]
  - Hyponatraemia [Recovering/Resolving]
  - Hypokalaemia [Recovering/Resolving]
  - Vomiting [Unknown]

NARRATIVE: CASE EVENT DATE: 20250330
